FAERS Safety Report 4685531-1 (Version None)
Quarter: 2005Q2

REPORT INFORMATION
  Report Type: 
  Country: None (occurrence: None)
  Receive Date: 20050608
  Receipt Date: 20050601
  Transmission Date: 20051028
  Serious: Yes (Hospitalization)
  Sender: FDA-Public Use
  Company Number: 2005PK00961

PATIENT
  Age: 28556 Day
  Sex: Female
  Weight: 70 kg

DRUGS (1)
  1. ATACAND [Suspect]
     Indication: HYPERTENSION
     Dates: start: 20050309, end: 20050314

REACTIONS (2)
  - DRUG ERUPTION [None]
  - EXANTHEM [None]
